FAERS Safety Report 5225925-9 (Version None)
Quarter: 2007Q1

REPORT INFORMATION
  Report Type: 
  Country: None (occurrence: None)
  Receive Date: 20070129
  Receipt Date: 20070118
  Transmission Date: 20070707
  Serious: Yes (Other)
  Sender: FDA-Public Use
  Company Number: GXKR2007GB00763

PATIENT
  Age: 28 Year
  Sex: Female

DRUGS (7)
  1. IBUPROFEN [Suspect]
     Dosage: 7-8 TABLETS, ORAL
     Route: 048
     Dates: start: 20001201
  2. PAROXETINE [Suspect]
     Dosage: SEE IMAGE
     Route: 048
     Dates: start: 19970902, end: 19990101
  3. PAROXETINE [Suspect]
     Dosage: SEE IMAGE
     Route: 048
     Dates: start: 19990101, end: 20000907
  4. PAROXETINE [Suspect]
     Dosage: SEE IMAGE
     Route: 048
     Dates: start: 20000907, end: 20010101
  5. PAROXETINE HCL [Suspect]
     Dosage: ORAL
     Route: 048
  6. LUSTRAL (SERTRALINE HYDROCHLORIDE) [Concomitant]
  7. SULPIRIDE (SULPIRIDE) [Concomitant]

REACTIONS (18)
  - ASTHENIA [None]
  - DEPRESSION [None]
  - DRUG ABUSER [None]
  - DRUG INEFFECTIVE [None]
  - DRUG WITHDRAWAL SYNDROME [None]
  - DRY MOUTH [None]
  - EATING DISORDER [None]
  - ECONOMIC PROBLEM [None]
  - FEELING ABNORMAL [None]
  - HYPERHIDROSIS [None]
  - HYPOAESTHESIA [None]
  - OVERDOSE [None]
  - PARANOIA [None]
  - POOR QUALITY SLEEP [None]
  - PRURITUS [None]
  - STRESS [None]
  - SUICIDAL IDEATION [None]
  - TEARFULNESS [None]
